FAERS Safety Report 25323598 (Version 1)
Quarter: 2025Q2

REPORT INFORMATION
  Report Type: Spontaneous
  Country: JP (occurrence: JP)
  Receive Date: 20250516
  Receipt Date: 20250516
  Transmission Date: 20250716
  Serious: Yes (Hospitalization, Other)
  Sender: BRISTOL-MYERS SQUIBB COMPANY
  Company Number: JP-BRISTOL-MYERS SQUIBB COMPANY-2025-068285

PATIENT
  Sex: Female
  Weight: 54 kg

DRUGS (23)
  1. YERVOY [Suspect]
     Active Substance: IPILIMUMAB
     Indication: Malignant melanoma
     Route: 041
     Dates: start: 20250304, end: 20250304
  2. YERVOY [Suspect]
     Active Substance: IPILIMUMAB
     Route: 041
     Dates: start: 20250304, end: 20250304
  3. OPDIVO [Suspect]
     Active Substance: NIVOLUMAB
     Indication: Malignant melanoma
     Route: 041
     Dates: start: 20250304, end: 20250304
  4. URSODEOXYCHOLIC ACID TOWA [Concomitant]
     Indication: Product used for unknown indication
     Dosage: AFTER BREAKFAST, LUNCH AND DINNER
     Dates: end: 20250325
  5. TEGRETOL [Concomitant]
     Active Substance: CARBAMAZEPINE
     Indication: Product used for unknown indication
     Dosage: AFTER BREAKFAST AND DINNER
     Route: 048
     Dates: start: 20250319, end: 20250325
  6. TEGRETOL [Concomitant]
     Active Substance: CARBAMAZEPINE
     Dosage: AFTER BREAKFAST AND DINNER
     Dates: end: 20250317
  7. MIYA-BM [Concomitant]
     Active Substance: CLOSTRIDIUM BUTYRICUM SPORES STRAIN M-55
     Indication: Product used for unknown indication
     Dosage: AFTER BREAKFAST, LUNCH AND DINNER
     Dates: start: 20250321, end: 20250325
  8. LANSOPRAZOLE [Concomitant]
     Active Substance: LANSOPRAZOLE
     Indication: Product used for unknown indication
     Dosage: AFTER BREAKFAST
     Dates: end: 20250325
  9. CANDESARTAN [Concomitant]
     Active Substance: CANDESARTAN
     Indication: Product used for unknown indication
     Dosage: AFTER BREAKFAST
     Dates: end: 20250325
  10. CILNIDIPINE [Concomitant]
     Active Substance: CILNIDIPINE
     Indication: Product used for unknown indication
     Dosage: AFTER BREAKFAST
     Dates: end: 20250325
  11. NIFEDIPINE CR SAWAI [Concomitant]
     Indication: Product used for unknown indication
     Dosage: AFTER LUNCH
     Dates: end: 20250325
  12. SODIUM FERROUS CITRATE [Concomitant]
     Active Substance: SODIUM FERROUS CITRATE
     Indication: Product used for unknown indication
     Dosage: AFTER BREAKFAST AND DINNER
     Dates: start: 20250313, end: 20250317
  13. AMOXICILLIN [Concomitant]
     Active Substance: AMOXICILLIN
     Indication: Product used for unknown indication
     Dosage: AFTER BREAKFAST, LUNCH AND DINNER
     Dates: start: 20250312, end: 20250315
  14. AMOXICILLIN\CLAVULANATE POTASSIUM [Concomitant]
     Active Substance: AMOXICILLIN\CLAVULANATE POTASSIUM
     Indication: Product used for unknown indication
     Dosage: AFTER BREAKFAST, LUNCH AND DINNER
     Dates: start: 20250319, end: 20250324
  15. HEPARINOID [Concomitant]
     Indication: Product used for unknown indication
     Dosage: TWICE APPLICATION PER DAY
     Route: 062
     Dates: start: 20250312
  16. MICONAZOLE [Concomitant]
     Active Substance: MICONAZOLE
     Indication: Product used for unknown indication
     Dosage: AFTER BREAKFAST, LUNCH, DINNER AND BEFORE BEDTIME
     Route: 048
     Dates: start: 20250307, end: 20250318
  17. BETAMETHASONE DIPROPIONATE [Concomitant]
     Active Substance: BETAMETHASONE DIPROPIONATE
     Indication: Product used for unknown indication
     Dosage: TWICE APPLICATION PER DAY
     Route: 062
     Dates: start: 20250315
  18. RINDERON VG [Concomitant]
     Active Substance: BETAMETHASONE VALERATE\GENTAMICIN SULFATE
     Indication: Product used for unknown indication
     Dosage: ONCE APPLICATION PER DAY
     Route: 062
     Dates: start: 20250323
  19. INSULIN GLARGINE BS LILLY [Concomitant]
     Indication: Product used for unknown indication
     Route: 058
     Dates: end: 20250325
  20. INSULIN ASPART BS SANOFI [Concomitant]
     Indication: Product used for unknown indication
     Route: 058
     Dates: start: 20250321, end: 20250325
  21. LOXOPROFEN SODIUM [Concomitant]
     Active Substance: LOXOPROFEN SODIUM
     Indication: Product used for unknown indication
     Route: 048
     Dates: start: 20250308, end: 20250310
  22. ACETAMINOPHEN SANWA [Concomitant]
     Indication: Product used for unknown indication
     Route: 048
     Dates: start: 20250308, end: 20250311
  23. NIFLEC [MACROGOL;POTASSIUM CHLORIDE;SODIUM BICARBONATE;SODIUM CHLORIDE [Concomitant]
     Indication: Product used for unknown indication
     Route: 048
     Dates: start: 20250318, end: 20250318

REACTIONS (4)
  - Immune-mediated enterocolitis [Unknown]
  - Nausea [Recovering/Resolving]
  - Vomiting [Recovering/Resolving]
  - Diarrhoea [Recovering/Resolving]

NARRATIVE: CASE EVENT DATE: 20250313
